FAERS Safety Report 21498906 (Version 1)
Quarter: 2022Q4

REPORT INFORMATION
  Report Type: Spontaneous
  Country: CN (occurrence: CN)
  Receive Date: 20221024
  Receipt Date: 20221024
  Transmission Date: 20230113
  Serious: Yes (Other)
  Sender: FDA-Public Use
  Company Number: CN-INFO-20220086

PATIENT
  Age: 75 Year
  Sex: Female

DRUGS (1)
  1. METRONIDAZOLE [Suspect]
     Active Substance: METRONIDAZOLE
     Indication: Amoebiasis
     Route: 042

REACTIONS (4)
  - Loss of consciousness [Unknown]
  - Nausea [Unknown]
  - Vomiting [Unknown]
  - Off label use [Not Recovered/Not Resolved]
